FAERS Safety Report 16302247 (Version 1)
Quarter: 2019Q2

REPORT INFORMATION
  Report Type: Report from Study
  Country: None (occurrence: US)
  Receive Date: 20190512
  Receipt Date: 20190512
  Transmission Date: 20190711
  Serious: Yes (Hospitalization, Other)
  Sender: FDA-Public Use
  Company Number: US-ABBVIE-19K-163-2737630-00

PATIENT
  Sex: Male

DRUGS (4)
  1. HUMIRA [Suspect]
     Active Substance: ADALIMUMAB
     Indication: CROHN^S DISEASE
     Dosage: STARTED IN 2016 OR 2017
     Route: 058
     Dates: start: 2016
  2. ENTYVIO [Suspect]
     Active Substance: VEDOLIZUMAB
     Indication: PRODUCT USED FOR UNKNOWN INDICATION
     Dosage: START DATE : 2017 OR 2018
     Route: 065
     Dates: start: 2017
  3. PREDNISONE. [Suspect]
     Active Substance: PREDNISONE
     Indication: PRODUCT USED FOR UNKNOWN INDICATION
     Route: 065
  4. HUMIRA [Suspect]
     Active Substance: ADALIMUMAB
     Route: 058
     Dates: start: 2018

REACTIONS (13)
  - Arthritis [Unknown]
  - Inflammation [Unknown]
  - Emotional distress [Unknown]
  - Therapeutic product effect decreased [Unknown]
  - Diarrhoea [Unknown]
  - Mobility decreased [Unknown]
  - Sinus disorder [Recovering/Resolving]
  - Osteoporosis [Unknown]
  - Complication associated with device [Unknown]
  - Gait disturbance [Unknown]
  - Osteoarthritis [Unknown]
  - Abdominal hernia [Unknown]
  - Weight increased [Recovered/Resolved]
